FAERS Safety Report 14291904 (Version 1)
Quarter: 2017Q4

REPORT INFORMATION
  Report Type: Spontaneous
  Country: US (occurrence: US)
  Receive Date: 20171215
  Receipt Date: 20171215
  Transmission Date: 20180321
  Serious: No
  Sender: FDA-Public Use
  Company Number: US-NOVOPROD-561394

PATIENT
  Age: 45 Year
  Sex: Male

DRUGS (2)
  1. LEVEMIR [Suspect]
     Active Substance: INSULIN DETEMIR
     Indication: TYPE 2 DIABETES MELLITUS
     Dosage: 12 U, BID
     Route: 058
     Dates: start: 201704
  2. HUMALOG [Suspect]
     Active Substance: INSULIN LISPRO
     Indication: TYPE 2 DIABETES MELLITUS
     Dosage: 5-6 U WITH A MEAL
     Route: 058
     Dates: start: 201704

REACTIONS (8)
  - Skin irritation [Not Recovered/Not Resolved]
  - Hyperglycaemia [Unknown]
  - Intentional product misuse [Recovered/Resolved]
  - Hypoglycaemia [Unknown]
  - Drug dose omission [Recovered/Resolved]
  - Feeling abnormal [Unknown]
  - Hypersensitivity [Not Recovered/Not Resolved]
  - Blood glucose increased [Unknown]

NARRATIVE: CASE EVENT DATE: 2017
